FAERS Safety Report 9715826 (Version 3)
Quarter: 2013Q4

REPORT INFORMATION
  Report Type: Spontaneous
  Country: US (occurrence: US)
  Receive Date: 20131127
  Receipt Date: 20131230
  Transmission Date: 20140711
  Serious: Yes (Other)
  Sender: FDA-Public Use
  Company Number: US-SA-2013SA099875

PATIENT
  Age: 74 Year
  Sex: Male

DRUGS (7)
  1. LANTUS SOLOSTAR [Suspect]
     Indication: TYPE 2 DIABETES MELLITUS
     Dosage: DOSE:30 UNIT(S)
     Route: 058
  2. LANTUS SOLOSTAR [Suspect]
     Indication: TYPE 2 DIABETES MELLITUS
     Dosage: DOSE:30 UNIT(S)
     Route: 058
  3. METFORMIN [Suspect]
  4. METFORMIN [Suspect]
  5. GLYBURIDE [Suspect]
  6. SOLOSTAR [Concomitant]
     Indication: TYPE 2 DIABETES MELLITUS
  7. SOLOSTAR [Concomitant]
     Indication: TYPE 2 DIABETES MELLITUS

REACTIONS (4)
  - Renal impairment [Unknown]
  - Visual impairment [Unknown]
  - Blood glucose decreased [Recovered/Resolved]
  - Blood glucose increased [Unknown]
